FAERS Safety Report 7647583-6 (Version None)
Quarter: 2011Q3

REPORT INFORMATION
  Report Type: 
  Country: None (occurrence: None)
  Receive Date: 20110801
  Receipt Date: 20110721
  Transmission Date: 20111222
  Serious: Yes (Hospitalization)
  Sender: FDA-Public Use
  Company Number: FR-JNJFOC-20110710276

PATIENT
  Age: 56 Year
  Sex: Female

DRUGS (1)
  1. ACETAMINOPHEN AND TRAMADOL HCL [Suspect]
     Indication: BACK PAIN
     Route: 048
     Dates: start: 20110713, end: 20110713

REACTIONS (5)
  - SPEECH DISORDER [None]
  - MALAISE [None]
  - VOMITING [None]
  - FATIGUE [None]
  - DIZZINESS [None]
